FAERS Safety Report 14234169 (Version 1)
Quarter: 2017Q4

REPORT INFORMATION
  Report Type: Spontaneous
  Country: US (occurrence: US)
  Receive Date: 20171129
  Receipt Date: 20171129
  Transmission Date: 20180321
  Serious: No
  Sender: FDA-Public Use
  Company Number: US-JNJFOC-20171106579

PATIENT
  Age: 3 Year
  Sex: Female

DRUGS (2)
  1. CHILDRENS MOTRIN [Suspect]
     Active Substance: IBUPROFEN
     Indication: PYREXIA
     Dosage: ACCIDENTALLY GAVE AN EXTRA DOSE OF 5ML AFTER 1 HOUR OF INITIAL DOSE
     Route: 065
     Dates: start: 20171105
  2. CHILDRENS MOTRIN [Suspect]
     Active Substance: IBUPROFEN
     Indication: OROPHARYNGEAL PAIN
     Dosage: ACCIDENTALLY GAVE AN EXTRA DOSE OF 5ML AFTER 1 HOUR OF INITIAL DOSE
     Route: 065
     Dates: start: 20171105

REACTIONS (2)
  - Extra dose administered [Unknown]
  - Inappropriate schedule of drug administration [Unknown]

NARRATIVE: CASE EVENT DATE: 20171105
